FAERS Safety Report 19972868 (Version 1)
Quarter: 2021Q4

REPORT INFORMATION
  Report Type: Spontaneous
  Country: US (occurrence: US)
  Receive Date: 20211019
  Receipt Date: 20211019
  Transmission Date: 20220303
  Serious: No
  Sender: FDA-Public Use
  Company Number: None

PATIENT
  Age: 56 Year
  Sex: Male
  Weight: 88.2 kg

DRUGS (2)
  1. TEPEZZA [Suspect]
     Active Substance: TEPROTUMUMAB-TRBW
     Indication: Hyperthyroidism
     Dosage: ?          OTHER FREQUENCY:EVERY 3 WEEKS;
     Route: 042
     Dates: start: 20210817
  2. SODIUM CHLORIDE [Concomitant]
     Active Substance: SODIUM CHLORIDE
     Dates: start: 20210817

REACTIONS (3)
  - Diarrhoea [None]
  - Abdominal pain upper [None]
  - Infusion related reaction [None]

NARRATIVE: CASE EVENT DATE: 20210909
